FAERS Safety Report 8223453-X (Version None)
Quarter: 2012Q1

REPORT INFORMATION
  Report Type: 
  Country: None (occurrence: None)
  Receive Date: 20120321
  Receipt Date: 20120313
  Transmission Date: 20120608
  Serious: Yes (Hospitalization, Other)
  Sender: FDA-Public Use
  Company Number: US-BAYER-2011-094720

PATIENT
  Age: 28 Year
  Sex: Female
  Weight: 66.667 kg

DRUGS (10)
  1. XIFANAX [Concomitant]
     Dosage: 200 MG, UNK
     Route: 048
     Dates: start: 20091022
  2. OMEPRAZOLE [Concomitant]
     Dosage: 40 MG, UNK
     Route: 048
     Dates: start: 20091022
  3. YASMIN [Suspect]
     Indication: CONTRACEPTION
     Dosage: UNK
     Dates: start: 19990101, end: 20040101
  4. HYDROCODONE BITARTRATE AND ACETAMINOPHEN [Concomitant]
     Dosage: 5-325MG/TABLET
     Route: 048
     Dates: start: 20090902
  5. AZITHROMYCIN [Concomitant]
     Dosage: 250 MG, UNK
     Route: 048
     Dates: start: 20090917
  6. CIPROFLOXACIN HCL [Concomitant]
     Dosage: 500 MG, UNK
     Route: 048
     Dates: start: 20091008
  7. ADVAIR DISKUS 100/50 [Concomitant]
     Dosage: 250-50/DISKUS GSK
     Route: 048
     Dates: start: 20091008
  8. SINGULAIR [Concomitant]
     Dosage: 10 MG, UNK
     Route: 048
     Dates: start: 20090815
  9. PROMETHAZINE [Concomitant]
     Dosage: UNK
     Route: 048
     Dates: start: 20090917
  10. YAZ [Suspect]
     Indication: CONTRACEPTION
     Dosage: UNK
     Dates: start: 20050101, end: 20091111

REACTIONS (8)
  - ABDOMINAL PAIN [None]
  - INJURY [None]
  - APPENDICITIS [None]
  - PAIN [None]
  - BILIARY DYSKINESIA [None]
  - CHOLECYSTITIS [None]
  - EATING DISORDER [None]
  - GALLBLADDER DISORDER [None]
